FAERS Safety Report 23776662 (Version 5)
Quarter: 2024Q2

REPORT INFORMATION
  Report Type: Spontaneous
  Country: US (occurrence: US)
  Receive Date: 20240424
  Receipt Date: 20240614
  Transmission Date: 20240715
  Serious: Yes (Other)
  Sender: FDA-Public Use
  Company Number: US-BIOVITRUM-2024-US-006053

PATIENT
  Age: 76 Year
  Sex: Female
  Weight: 44.72 kg

DRUGS (14)
  1. VONJO [Suspect]
     Active Substance: PACRITINIB
     Indication: Polycythaemia vera
     Dosage: TWICE DAILY
     Route: 048
     Dates: start: 20240402
  2. VONJO [Suspect]
     Active Substance: PACRITINIB
     Dosage: TWICE A DAY
     Route: 048
     Dates: start: 20240404
  3. JAKAFI [Suspect]
     Active Substance: RUXOLITINIB
     Indication: Polycythaemia vera
     Dosage: TWICE DAILY WITH OR WITHOUT FOOD
     Route: 048
     Dates: start: 20220615
  4. JAKAFI [Suspect]
     Active Substance: RUXOLITINIB
     Dosage: TWICE DAILY WITH OR WITHOUT FOOD
     Route: 048
     Dates: start: 20220610
  5. JAKAFI [Suspect]
     Active Substance: RUXOLITINIB
     Dosage: TWICE DAILY WITH OR WITHOUT FOOD
     Route: 048
     Dates: start: 20220627
  6. COLACE [Suspect]
     Active Substance: DOCUSATE SODIUM
     Indication: Constipation
  7. CELEBREX [Concomitant]
     Active Substance: CELECOXIB
     Indication: Product used for unknown indication
  8. CLOBETASOL PROPIONATE [Concomitant]
     Active Substance: CLOBETASOL PROPIONATE
     Indication: Product used for unknown indication
  9. LOMOTIL [Concomitant]
     Active Substance: ATROPINE SULFATE\DIPHENOXYLATE HYDROCHLORIDE
     Indication: Product used for unknown indication
  10. TRIAMCINOLONE ACETONIDE [Concomitant]
     Active Substance: TRIAMCINOLONE ACETONIDE
     Indication: Product used for unknown indication
  11. VITAMIN B12 [Concomitant]
     Active Substance: CYANOCOBALAMIN
     Indication: Product used for unknown indication
  12. ZOLOFT [Concomitant]
     Active Substance: SERTRALINE HYDROCHLORIDE
     Indication: Product used for unknown indication
  13. ZYRTEC [Concomitant]
     Active Substance: CETIRIZINE HYDROCHLORIDE
     Indication: Product used for unknown indication
  14. VIDAZA [Concomitant]
     Active Substance: AZACITIDINE
     Indication: Product used for unknown indication
     Dosage: SUSPENSION

REACTIONS (28)
  - Intentional product misuse [Not Recovered/Not Resolved]
  - Vomiting [Unknown]
  - Dyspnoea [Unknown]
  - Constipation [Unknown]
  - Nausea [Unknown]
  - Decreased appetite [Unknown]
  - Weight abnormal [Unknown]
  - Taste disorder [Unknown]
  - Muscular weakness [Unknown]
  - Movement disorder [Unknown]
  - Asthenia [Unknown]
  - Loss of personal independence in daily activities [Unknown]
  - Discouragement [Unknown]
  - Splenomegaly [Unknown]
  - Oedema [Unknown]
  - Fatigue [Unknown]
  - Blood potassium decreased [Unknown]
  - Haemoglobin decreased [Unknown]
  - Brain fog [Unknown]
  - Peripheral swelling [Unknown]
  - Platelet count decreased [Unknown]
  - Night sweats [Unknown]
  - Disorientation [Unknown]
  - Feeling abnormal [Unknown]
  - Fall [Unknown]
  - Epistaxis [Unknown]
  - Increased tendency to bruise [Unknown]
  - Leukaemia [Unknown]

NARRATIVE: CASE EVENT DATE: 20240402
